FAERS Safety Report 5105571-8 (Version None)
Quarter: 2006Q3

REPORT INFORMATION
  Report Type: 
  Country: None (occurrence: None)
  Receive Date: 20060915
  Receipt Date: 20060901
  Transmission Date: 20061208
  Serious: Yes (Other)
  Sender: FDA-Public Use
  Company Number: US-JNJFOC-20060900790

PATIENT
  Sex: Female
  Weight: 102.06 kg

DRUGS (10)
  1. DURAGESIC-100 [Suspect]
     Indication: PAIN
     Route: 062
     Dates: start: 20050901
  2. SYNTHROID [Concomitant]
     Indication: THYROID DISORDER
     Route: 048
     Dates: start: 19860101
  3. ALTACE [Concomitant]
     Indication: RENAL DISORDER
     Route: 048
     Dates: start: 20010101
  4. AMBIEN CR [Concomitant]
     Indication: SLEEP DISORDER
     Route: 048
     Dates: start: 20040101
  5. GLUCOVANCE [Concomitant]
     Indication: DIABETES MELLITUS
     Route: 048
     Dates: start: 20040101
  6. LANTUS [Concomitant]
     Indication: DIABETES MELLITUS
     Route: 058
     Dates: start: 20020101
  7. METHOTREXATE [Concomitant]
     Indication: OSTEOARTHRITIS
     Route: 065
  8. METHOTREXATE [Concomitant]
     Indication: RHEUMATOID ARTHRITIS
     Route: 065
  9. CLONADINE [Concomitant]
     Indication: HYPERHIDROSIS
     Route: 065
  10. CLONADINE [Concomitant]
     Indication: HOT FLUSH
     Route: 065

REACTIONS (7)
  - ANAEMIA [None]
  - CONDITION AGGRAVATED [None]
  - DEPRESSION [None]
  - HOT FLUSH [None]
  - HYPERHIDROSIS [None]
  - OSTEOARTHRITIS [None]
  - RHEUMATOID ARTHRITIS [None]
